FAERS Safety Report 16505426 (Version 1)
Quarter: 2019Q3

REPORT INFORMATION
  Report Type: Spontaneous
  Country: GB (occurrence: GB)
  Receive Date: 20190701
  Receipt Date: 20190701
  Transmission Date: 20191004
  Serious: Yes (Other)
  Sender: FDA-Public Use
  Company Number: GB-MYLANLABS-2019M1059992

PATIENT
  Age: 58 Year
  Sex: Female
  Weight: 104 kg

DRUGS (19)
  1. AMLODIPINE [Concomitant]
     Active Substance: AMLODIPINE BESYLATE
     Dosage: 1 DOSAGE FORM, BID
     Dates: start: 20181127
  2. PROPRANOLOL [Concomitant]
     Active Substance: PROPRANOLOL HYDROCHLORIDE
     Dosage: 3 DOSAGE FORM, QD
     Dates: start: 20180711
  3. DOXYCYCLINE. [Suspect]
     Active Substance: DOXYCYCLINE
     Indication: PRODUCT USED FOR UNKNOWN INDICATION
     Dosage: TWO NOW THEN ONE DAILY
  4. PEPPERMINT OIL [Concomitant]
     Active Substance: PEPPERMINT OIL
     Dosage: 3 DOSAGE FORM, QD
     Dates: start: 20171123
  5. LOPERAMIDE [Concomitant]
     Active Substance: LOPERAMIDE
     Dosage: USE AS DIRECTED
     Dates: start: 20180711
  6. COCODAMOL [Concomitant]
     Active Substance: ACETAMINOPHEN\CODEINE PHOSPHATE
     Dosage: 4 TIMES/DAY
     Dates: start: 20171123
  7. CLARITHROMYCIN. [Concomitant]
     Active Substance: CLARITHROMYCIN
     Dosage: 1 DOSAGE FORM, BID
     Dates: start: 20190107
  8. NEDITOL [Concomitant]
     Active Substance: TOLTERODINE
     Dosage: 1 DOSAGE FORM, QD
     Dates: start: 20180525
  9. DICLOFENAC SODIUM. [Concomitant]
     Active Substance: DICLOFENAC SODIUM
     Dosage: TAKE ONE TWO TO THREE TIMES A DAY
     Dates: start: 20171123
  10. PREDNISOLONE. [Concomitant]
     Active Substance: PREDNISOLONE
     Dosage: FOR 3 DAYS
     Dates: start: 20190107
  11. CLOMIPRAMINE [Concomitant]
     Active Substance: CLOMIPRAMINE
     Dosage: 4 DOSAGE FORM, QD
     Dates: start: 20180711
  12. OMEPRAZOLE. [Concomitant]
     Active Substance: OMEPRAZOLE
     Dosage: 2 DOSAGE FORM, QD
     Dates: start: 20180711
  13. DAPAGLIFLOZIN. [Concomitant]
     Active Substance: DAPAGLIFLOZIN
     Dosage: 1 DOSAGE FORM, QD
     Dates: start: 20180711
  14. LANTUS [Concomitant]
     Active Substance: INSULIN GLARGINE
     Dosage: USE AS DIRECTED
     Dates: start: 20180711
  15. NOVORAPID [Concomitant]
     Active Substance: INSULIN ASPART
     Dosage: USE AS DIRECTED
     Dates: start: 20180329
  16. SALBUTAMOL [Concomitant]
     Active Substance: ALBUTEROL
     Dosage: PUFFS EVERY 4 TO 6 HOURS
     Dates: start: 20190107
  17. HYDROCORTISONE. [Concomitant]
     Active Substance: HYDROCORTISONE
     Dosage: APPLY
     Dates: start: 20181127
  18. EZETIMIBE. [Concomitant]
     Active Substance: EZETIMIBE
     Dosage: 1 DOSAGE FORM, QD
     Dates: start: 20180711
  19. ROSUVASTATIN. [Concomitant]
     Active Substance: ROSUVASTATIN
     Dosage: 3RD LINE
     Dates: start: 20181221

REACTIONS (2)
  - Wheezing [Unknown]
  - Dyspnoea [Recovering/Resolving]
